FAERS Safety Report 19145299 (Version 7)
Quarter: 2022Q1

REPORT INFORMATION
  Report Type: Spontaneous
  Country: US (occurrence: US)
  Receive Date: 20210416
  Receipt Date: 20220115
  Transmission Date: 20220423
  Serious: No
  Sender: FDA-Public Use
  Company Number: US-BIOGEN-2021BI00996871

PATIENT
  Age: 58 Year
  Sex: Female

DRUGS (8)
  1. VUMERITY [Suspect]
     Active Substance: DIROXIMEL FUMARATE
     Indication: Multiple sclerosis
     Route: 065
     Dates: start: 20210308
  2. VUMERITY [Suspect]
     Active Substance: DIROXIMEL FUMARATE
     Route: 065
     Dates: start: 20210322
  3. VUMERITY [Suspect]
     Active Substance: DIROXIMEL FUMARATE
     Dosage: STARTING DOSE ?TAKE 1 CAPSULE BY MOUTH TWICE DAILY
     Route: 048
     Dates: start: 20210422
  4. VUMERITY [Suspect]
     Active Substance: DIROXIMEL FUMARATE
     Dosage: MAINTENANCE DOSE ?TAKE 2 CAPSULES (462MG) BY MOUTH TWICE DAILY.
     Route: 048
     Dates: start: 20210429
  5. AMLODIPINE BESYLATE [Concomitant]
     Active Substance: AMLODIPINE BESYLATE
     Route: 045
  6. ATORVASTATIN CALCIUM [Concomitant]
     Active Substance: ATORVASTATIN CALCIUM
     Route: 045
  7. LISINOPRIL/HYDROCHLOROTHI [Concomitant]
     Route: 045
  8. ASPIRIN [Concomitant]
     Active Substance: ASPIRIN
     Route: 045

REACTIONS (12)
  - Underdose [Unknown]
  - Drug ineffective [Unknown]
  - Headache [Unknown]
  - Vision blurred [Unknown]
  - Fatigue [Unknown]
  - Confusional state [Unknown]
  - Asthenia [Unknown]
  - Illness [Unknown]
  - Feeling abnormal [Unknown]
  - Nasopharyngitis [Not Recovered/Not Resolved]
  - Abdominal pain upper [Unknown]
  - Pruritus [Unknown]

NARRATIVE: CASE EVENT DATE: 20210501
